FAERS Safety Report 19829412 (Version 2)
Quarter: 2021Q3

REPORT INFORMATION
  Report Type: Spontaneous
  Country: US (occurrence: US)
  Receive Date: 20210914
  Receipt Date: 20210916
  Transmission Date: 20211014
  Serious: No
  Sender: FDA-Public Use
  Company Number: US-TEVA-2021-US-1946493

PATIENT
  Sex: Male

DRUGS (1)
  1. CARBIDOPA AND LEVODOPA [Suspect]
     Active Substance: CARBIDOPA\LEVODOPA
     Indication: PARKINSON^S DISEASE
     Dosage: 25/100 (2 HALF TABLETS EVERY TWO HOURS OR THREE HOUR)
     Route: 065
     Dates: start: 2010

REACTIONS (14)
  - Gastrointestinal tract irritation [Unknown]
  - Therapeutic product effect decreased [Unknown]
  - Dry eye [Unknown]
  - Abnormal behaviour [Unknown]
  - Thirst [Unknown]
  - Product formulation issue [Unknown]
  - Abdominal discomfort [Unknown]
  - Impaired work ability [Unknown]
  - Bladder irritation [Unknown]
  - Dyskinesia [Unknown]
  - Headache [Unknown]
  - Dehydration [Unknown]
  - Somnolence [Unknown]
  - Adverse drug reaction [Unknown]

NARRATIVE: CASE EVENT DATE: 2021
